FAERS Safety Report 16240019 (Version 1)
Quarter: 2019Q2

REPORT INFORMATION
  Report Type: Spontaneous
  Country: US (occurrence: US)
  Receive Date: 20190425
  Receipt Date: 20190425
  Transmission Date: 20190711
  Serious: No
  Sender: FDA-Public Use
  Company Number: US-ALLERGAN-1838873US

PATIENT
  Age: 68 Year
  Sex: Male

DRUGS (2)
  1. TRELSTAR [Suspect]
     Active Substance: TRIPTORELIN PAMOATE
     Indication: PROSTATE CANCER
     Dosage: 22.5 MG, SINGLE, EVERY 24 WEEKS
     Route: 051
     Dates: start: 20180801, end: 20180801
  2. TRELSTAR [Suspect]
     Active Substance: TRIPTORELIN PAMOATE
     Dosage: 22.5 MG, SINGLE, EVERY 24 WEEKS
     Route: 051

REACTIONS (2)
  - Syringe issue [Unknown]
  - Product dose omission [Unknown]
